FAERS Safety Report 20899628 (Version 1)
Quarter: 2022Q2

REPORT INFORMATION
  Report Type: Spontaneous
  Country: TR (occurrence: TR)
  Receive Date: 20220601
  Receipt Date: 20220601
  Transmission Date: 20220721
  Serious: Yes (Hospitalization, Other)
  Sender: FDA-Public Use
  Company Number: TR-ALKEM LABORATORIES LIMITED-TR-ALKEM-2022-05209

PATIENT

DRUGS (1)
  1. ISONIAZID [Suspect]
     Active Substance: ISONIAZID
     Indication: Product used for unknown indication
     Dosage: UNK
     Route: 065

REACTIONS (5)
  - Seizure [Unknown]
  - Coma [Unknown]
  - Suicidal ideation [Unknown]
  - Metabolic acidosis [Unknown]
  - Toxicity to various agents [Unknown]
